FAERS Safety Report 21910880 (Version 1)
Quarter: 2023Q1

REPORT INFORMATION
  Report Type: Spontaneous
  Country: US (occurrence: US)
  Receive Date: 20230125
  Receipt Date: 20230125
  Transmission Date: 20230417
  Serious: No
  Sender: FDA-Public Use
  Company Number: US-ABBVIE-4249505

PATIENT
  Sex: Female

DRUGS (2)
  1. SYNTHROID [Suspect]
     Active Substance: LEVOTHYROXINE SODIUM
     Indication: Product used for unknown indication
     Dosage: 100 MG
     Route: 048
  2. ARMOUR THYROID [Suspect]
     Active Substance: THYROID, PORCINE
     Indication: Product used for unknown indication
     Route: 048

REACTIONS (13)
  - Malabsorption [Unknown]
  - Heart rate decreased [Unknown]
  - Alopecia [Unknown]
  - Blood thyroid stimulating hormone decreased [Unknown]
  - Dehydration [Not Recovered/Not Resolved]
  - Skin fissures [Unknown]
  - Insomnia [Unknown]
  - Madarosis [Unknown]
  - Dry skin [Unknown]
  - Drug ineffective [Unknown]
  - Malabsorption [Unknown]
  - Weight increased [Unknown]
  - Blood thyroid stimulating hormone abnormal [Unknown]
